FAERS Safety Report 16736983 (Version 1)
Quarter: 2019Q3

REPORT INFORMATION
  Report Type: Spontaneous
  Country: US (occurrence: US)
  Receive Date: 20190823
  Receipt Date: 20190823
  Transmission Date: 20191005
  Serious: Yes (Hospitalization, Other)
  Sender: FDA-Public Use
  Company Number: US-JNJFOC-20190821318

PATIENT
  Sex: Female

DRUGS (2)
  1. XARELTO [Suspect]
     Active Substance: RIVAROXABAN
     Indication: THROMBOSIS
     Dosage: UDI: 100008010883
     Route: 048
  2. XARELTO [Suspect]
     Active Substance: RIVAROXABAN
     Dosage: UDI: 100000866281
     Route: 048

REACTIONS (4)
  - Nausea [Unknown]
  - Haematoma [Not Recovered/Not Resolved]
  - Malaise [Unknown]
  - Haemorrhage [Unknown]

NARRATIVE: CASE EVENT DATE: 201811
